FAERS Safety Report 5220772-6 (Version None)
Quarter: 2007Q1

REPORT INFORMATION
  Report Type: 
  Country: None (occurrence: None)
  Receive Date: 20070123
  Receipt Date: 20070112
  Transmission Date: 20070707
  Serious: Yes (Other)
  Sender: FDA-Public Use
  Company Number: CHNY2006JP02898

PATIENT
  Age: 58 Year
  Sex: Male
  Weight: 77 kg

DRUGS (7)
  1. NICOTINE [Suspect]
     Indication: SMOKING CESSATION THERAPY
     Dosage: SEE IMAGE
     Route: 062
     Dates: start: 20060808, end: 20060908
  2. NICOTINE [Suspect]
     Indication: SMOKING CESSATION THERAPY
     Dosage: SEE IMAGE
     Route: 062
     Dates: start: 20060909, end: 20060924
  3. NICOTINE [Suspect]
     Indication: SMOKING CESSATION THERAPY
     Dosage: SEE IMAGE
     Route: 062
     Dates: start: 20060925, end: 20061014
  4. DIOVAN [Concomitant]
  5. TENORMIN [Concomitant]
  6. NORVASC [Concomitant]
  7. DOXAZOSIN MESYLATE [Concomitant]

REACTIONS (6)
  - APPLICATION SITE DERMATITIS [None]
  - APPLICATION SITE PRURITUS [None]
  - COUGH [None]
  - DYSPNOEA [None]
  - RASH GENERALISED [None]
  - URTICARIA [None]
